FAERS Safety Report 19454336 (Version 1)
Quarter: 2021Q2

REPORT INFORMATION
  Report Type: Spontaneous
  Country: US (occurrence: US)
  Receive Date: 20210623
  Receipt Date: 20210623
  Transmission Date: 20210717
  Serious: No
  Sender: FDA-Public Use
  Company Number: US-LUPIN PHARMACEUTICALS INC.-2021-09629

PATIENT
  Age: 58 Year
  Sex: Male

DRUGS (1)
  1. TRAMADOL HYDROCHLORIDE EXTENDED?RELEASE TABLETS [Suspect]
     Active Substance: TRAMADOL HYDROCHLORIDE
     Indication: PRODUCT USED FOR UNKNOWN INDICATION
     Dosage: 200 MILLIGRAM, QD
     Route: 065

REACTIONS (2)
  - Constipation [Unknown]
  - Somnolence [Unknown]
